FAERS Safety Report 24388968 (Version 2)
Quarter: 2024Q4

REPORT INFORMATION
  Report Type: Spontaneous
  Country: TW (occurrence: TW)
  Receive Date: 20241002
  Receipt Date: 20241009
  Transmission Date: 20250115
  Serious: Yes (Death, Hospitalization, Other)
  Sender: MERCK
  Company Number: TW-009507513-2409TWN010444

PATIENT
  Age: 73 Year
  Sex: Male

DRUGS (3)
  1. KEYTRUDA [Suspect]
     Active Substance: PEMBROLIZUMAB
     Indication: Squamous cell carcinoma of lung
  2. CARBOPLATIN [Suspect]
     Active Substance: CARBOPLATIN
     Indication: Squamous cell carcinoma of lung
  3. TAXOTERE [Suspect]
     Active Substance: DOCETAXEL
     Indication: Squamous cell carcinoma of lung

REACTIONS (3)
  - Pneumonia [Fatal]
  - Pulmonary resection [Unknown]
  - Product use issue [Unknown]
